FAERS Safety Report 20085841 (Version 1)
Quarter: 2021Q4

REPORT INFORMATION
  Report Type: Spontaneous
  Country: JP (occurrence: JP)
  Receive Date: 20211118
  Receipt Date: 20211118
  Transmission Date: 20220303
  Serious: Yes (Other)
  Sender: FDA-Public Use
  Company Number: JP-PFIZER INC-202101514471

PATIENT

DRUGS (1)
  1. INLYTA [Suspect]
     Active Substance: AXITINIB
     Dosage: 15 MG AT ONE TIME
     Route: 048

REACTIONS (4)
  - Haemorrhagic diathesis [Unknown]
  - Sinus node dysfunction [Unknown]
  - Cardiac disorder [Unknown]
  - Off label use [Unknown]
